FAERS Safety Report 9587042 (Version 2)
Quarter: 2013Q4

REPORT INFORMATION
  Report Type: Report from Study
  Country: FR (occurrence: FR)
  Receive Date: 20131003
  Receipt Date: 20131003
  Transmission Date: 20140711
  Serious: Yes (Life-Threatening, Hospitalization, Other)
  Sender: FDA-Public Use
  Company Number: FR-ABBVIE-10P-056-0640619-00

PATIENT
  Age: 33 Year
  Sex: Female
  Weight: 49 kg

DRUGS (4)
  1. HUMIRA [Suspect]
     Indication: CROHN^S DISEASE
     Route: 058
     Dates: start: 20080909, end: 20080909
  2. HUMIRA [Suspect]
     Route: 058
  3. HUMIRA [Suspect]
     Route: 058
     Dates: end: 20100118
  4. AZATHIOPRINE [Concomitant]
     Indication: CROHN^S DISEASE
     Dates: start: 200108

REACTIONS (10)
  - Large intestine perforation [Recovered/Resolved]
  - Peritonitis [Recovered/Resolved]
  - Acute respiratory distress syndrome [Recovered/Resolved]
  - Peritonitis [Recovered/Resolved]
  - Acute respiratory distress syndrome [Recovered/Resolved]
  - Fungal peritonitis [Recovered/Resolved]
  - Malnutrition [Recovered/Resolved]
  - Pneumothorax [Recovered/Resolved]
  - Pleural effusion [Recovered/Resolved]
  - Splenic rupture [Recovered/Resolved]
